FAERS Safety Report 13605853 (Version 1)
Quarter: 2017Q2

REPORT INFORMATION
  Report Type: Spontaneous
  Country: GB (occurrence: GB)
  Receive Date: 20170602
  Receipt Date: 20170602
  Transmission Date: 20170830
  Serious: Yes (Hospitalization)
  Sender: FDA-Public Use
  Company Number: GB-ASTRAZENECA-2017SE56993

PATIENT
  Age: 59 Year
  Sex: Male

DRUGS (7)
  1. TICAGRELOR [Suspect]
     Active Substance: TICAGRELOR
     Indication: ACUTE MYOCARDIAL INFARCTION
     Route: 048
     Dates: start: 20170207, end: 20170515
  2. AMOXICILLIN. [Concomitant]
     Active Substance: AMOXICILLIN
  3. ASPIRIN. [Concomitant]
     Active Substance: ASPIRIN
  4. RAMIPRIL. [Concomitant]
     Active Substance: RAMIPRIL
  5. ATORVASTATIN [Concomitant]
     Active Substance: ATORVASTATIN
     Dosage: 40.0MG UNKNOWN
  6. ATORVASTATIN [Concomitant]
     Active Substance: ATORVASTATIN
     Dosage: 80.0MG UNKNOWN
  7. LANSOPRAZOLE. [Concomitant]
     Active Substance: LANSOPRAZOLE

REACTIONS (1)
  - Paraesthesia [Recovering/Resolving]

NARRATIVE: CASE EVENT DATE: 20170412
